FAERS Safety Report 9119508 (Version 1)
Quarter: 2013Q1

REPORT INFORMATION
  Report Type: Spontaneous
  Country: US (occurrence: None)
  Receive Date: 20130221
  Receipt Date: 20130221
  Transmission Date: 20140127
  Serious: No
  Sender: FDA-Public Use
  Company Number: None

PATIENT
  Sex: 0

DRUGS (2)
  1. SODIUM BICARBONATE [Suspect]
     Dosage: 20391-DK HOSPIRA, INC. INJECTABLE INTERVENOUS 8.4% ABBOJECT UNIT OF USE 10 ML 0409-4900-34
     Route: 042
  2. SODIUM BICARBONATE [Suspect]
     Dosage: 20384-DK HOSPIRA, INC. INJECTABLE INTERVENOUS 4.2% ABBOJECT UNIT OF USE 10 ML 0409-5534-34
     Route: 042

REACTIONS (2)
  - Medication error [None]
  - Product label issue [None]
